FAERS Safety Report 19811346 (Version 1)
Quarter: 2021Q3

REPORT INFORMATION
  Report Type: Spontaneous
  Country: IT (occurrence: IT)
  Receive Date: 20210909
  Receipt Date: 20210909
  Transmission Date: 20211014
  Serious: Yes (Hospitalization)
  Sender: FDA-Public Use
  Company Number: IT-ASTRAZENECA-2021A676582

PATIENT
  Age: 71 Year
  Sex: Female
  Weight: 73 kg

DRUGS (1)
  1. TAGRISSO [Suspect]
     Active Substance: OSIMERTINIB
     Indication: LUNG NEOPLASM
     Route: 048
     Dates: start: 20200312, end: 20210415

REACTIONS (8)
  - Cardiac failure [Recovering/Resolving]
  - Iron deficiency anaemia [Recovering/Resolving]
  - Thrombocytopenia [Recovering/Resolving]
  - Congestive cardiomyopathy [Recovering/Resolving]
  - Oxygen saturation decreased [Recovering/Resolving]
  - Hyperuricaemia [Recovering/Resolving]
  - Dyspnoea [Recovering/Resolving]
  - Petit mal epilepsy [Recovering/Resolving]

NARRATIVE: CASE EVENT DATE: 20210518
